FAERS Safety Report 11297858 (Version 1)
Quarter: 2015Q3

REPORT INFORMATION
  Report Type: Spontaneous
  Country: US (occurrence: US)
  Receive Date: 20150722
  Receipt Date: 20150722
  Transmission Date: 20151125
  Serious: No
  Sender: FDA-Public Use
  Company Number: US-ELI_LILLY_AND_COMPANY-US201003004811

PATIENT
  Sex: Male

DRUGS (2)
  1. HUMATROPE [Suspect]
     Active Substance: SOMATROPIN
     Dosage: 0.85 MG, DAILY (1/D)
     Dates: start: 200906
  2. HUMATROPE [Suspect]
     Active Substance: SOMATROPIN
     Dosage: 1 MG, DAILY (1/D)

REACTIONS (6)
  - Abdominal pain [Unknown]
  - Diarrhoea [Unknown]
  - Abdominal distension [Unknown]
  - Abdominal pain upper [Unknown]
  - Increased appetite [Unknown]
  - Oropharyngeal pain [Unknown]

NARRATIVE: CASE EVENT DATE: 2010
